FAERS Safety Report 12342061 (Version 2)
Quarter: 2016Q3

REPORT INFORMATION
  Report Type: Spontaneous
  Country: US (occurrence: US)
  Receive Date: 20160506
  Receipt Date: 20160707
  Transmission Date: 20161109
  Serious: Yes (Hospitalization)
  Sender: FDA-Public Use
  Company Number: US-ELI_LILLY_AND_COMPANY-US201605000195

PATIENT
  Sex: Female

DRUGS (1)
  1. ADCIRCA [Suspect]
     Active Substance: TADALAFIL
     Indication: PRODUCT USED FOR UNKNOWN INDICATION
     Dosage: UNK, UNKNOWN (20)
     Route: 048
     Dates: start: 20160420, end: 20160426

REACTIONS (3)
  - Pulmonary hypertension [Recovered/Resolved]
  - Back pain [Recovered/Resolved]
  - Myalgia [Recovered/Resolved]
